FAERS Safety Report 9484059 (Version 2)
Quarter: 2013Q3

REPORT INFORMATION
  Report Type: Spontaneous
  Country: CA (occurrence: CA)
  Receive Date: 20130828
  Receipt Date: 20130828
  Transmission Date: 20140515
  Serious: Yes (Other)
  Sender: FDA-Public Use
  Company Number: CA-AMGEN-KDL326662

PATIENT
  Age: 66 Year
  Sex: Male
  Weight: 109 kg

DRUGS (12)
  1. ENBREL [Suspect]
     Indication: SYSTEMIC LUPUS ERYTHEMATOSUS
     Dosage: 50 MG, QWK
     Route: 065
     Dates: start: 20081218
  2. ENBREL [Suspect]
     Dosage: 50 MG, QWK
     Route: 065
     Dates: start: 20081218
  3. METOPROLOL [Concomitant]
     Dosage: UNK UNK, UNK
  4. ACETYLSALICYLIC ACID [Concomitant]
     Dosage: UNK UNK, UNK
  5. RAMIPRIL [Concomitant]
     Dosage: UNK UNK, UNK
  6. GLICLAZIDE [Concomitant]
     Dosage: UNK UNK, UNK
  7. FOLIC ACID [Concomitant]
     Dosage: UNK UNK, UNK
  8. OMEPRAZOLE [Concomitant]
     Dosage: UNK UNK, UNK
  9. PREDNISONE [Concomitant]
     Dosage: UNK UNK, UNK
  10. CETIRIZINE [Concomitant]
     Dosage: UNK UNK, UNK
  11. METHOTREXATE [Concomitant]
     Dosage: UNK UNK, 4 TIMES/WK
     Route: 048
  12. CELECOXIB [Concomitant]
     Dosage: UNK UNK, UNK

REACTIONS (9)
  - Systemic lupus erythematosus [Recovering/Resolving]
  - Drug dose omission [Unknown]
  - Wound infection [Recovering/Resolving]
  - Injection site pain [Unknown]
  - Erythema [Unknown]
  - Injection site swelling [Not Recovered/Not Resolved]
  - Urticaria [Unknown]
  - Feeling hot [Unknown]
  - Tenderness [Unknown]
